FAERS Safety Report 10257553 (Version 1)
Quarter: 2014Q2

REPORT INFORMATION
  Report Type: Report from Study
  Country: NL (occurrence: NL)
  Receive Date: 20140625
  Receipt Date: 20140625
  Transmission Date: 20141212
  Serious: Yes (Other)
  Sender: FDA-Public Use
  Company Number: PHHY2014NL077981

PATIENT
  Sex: Male

DRUGS (2)
  1. SANDOSTATINE LAR [Suspect]
     Indication: PERITONEAL CARCINOMA METASTATIC
     Dosage: 30 MG/2ML, ONCE EVERY 4 WEEKS
     Route: 030
     Dates: start: 20140523
  2. SANDOSTATINE LAR [Suspect]
     Indication: OFF LABEL USE

REACTIONS (1)
  - Terminal state [Unknown]
